FAERS Safety Report 7041044-3 (Version None)
Quarter: 2010Q4

REPORT INFORMATION
  Report Type: 
  Country: None (occurrence: None)
  Receive Date: 20101013
  Receipt Date: 20101004
  Transmission Date: 20110411
  Serious: Yes (Hospitalization)
  Sender: FDA-Public Use
  Company Number: FR-ASTRAZENECA-2010SE47686

PATIENT
  Age: 32826 Day
  Sex: Female

DRUGS (13)
  1. PULMICORT [Suspect]
     Indication: BRONCHITIS
     Route: 055
     Dates: start: 20100212, end: 20100216
  2. LASIX [Suspect]
     Indication: BRONCHITIS
     Route: 048
     Dates: start: 20100212, end: 20100216
  3. CORTANCYL [Suspect]
     Indication: BRONCHITIS
     Route: 048
     Dates: start: 20100212, end: 20100216
  4. TAVANIC [Suspect]
     Indication: BRONCHITIS
     Route: 048
     Dates: start: 20100212, end: 20100216
  5. VENTOLIN [Suspect]
     Indication: BRONCHITIS
     Route: 055
     Dates: start: 20100212, end: 20100216
  6. CACIT VITAMIN D3 [Concomitant]
     Indication: VITAMIN D DEFICIENCY
     Route: 048
     Dates: end: 20100216
  7. FORLAX [Concomitant]
     Indication: CONSTIPATION
     Dosage: AS NEEDED
     Route: 048
     Dates: end: 20100216
  8. VASTAREL [Concomitant]
     Indication: ANGINA PECTORIS
     Route: 048
     Dates: end: 20100216
  9. DIAMICRON [Concomitant]
     Indication: TYPE 2 DIABETES MELLITUS
     Route: 048
     Dates: end: 20100216
  10. HYPERIUM [Concomitant]
     Indication: HYPERTENSION
     Route: 048
     Dates: end: 20100216
  11. PLAVIX [Concomitant]
     Indication: ATHEROSCLEROSIS PROPHYLAXIS
     Route: 048
     Dates: end: 20100216
  12. COAPROVEL [Concomitant]
     Indication: HYPERTENSION
     Dosage: 1 DF DAILY
     Route: 048
     Dates: end: 20100216
  13. ARICEPT [Concomitant]
     Indication: DEMENTIA ALZHEIMER'S TYPE
     Route: 048
     Dates: end: 20100216

REACTIONS (2)
  - CONFUSIONAL STATE [None]
  - HALLUCINATION [None]
